FAERS Safety Report 4632658-6 (Version None)
Quarter: 2005Q2

REPORT INFORMATION
  Report Type: 
  Country: None (occurrence: None)
  Receive Date: 20050331
  Receipt Date: 20040916
  Transmission Date: 20051028
  Serious: Yes (Other)
  Sender: FDA-Public Use
  Company Number: 200414486BCC

PATIENT
  Age: 73 Year
  Sex: Female
  Weight: 72.5755 kg

DRUGS (2)
  1. ALEVE [Suspect]
     Dosage: 440 MG, BID, ORAL; 220 MG, BID, ORAL
     Route: 048
     Dates: start: 20040101, end: 20040915
  2. ALEVE [Suspect]
     Dosage: 440 MG, BID, ORAL; 220 MG, BID, ORAL
     Route: 048
     Dates: start: 20040101

REACTIONS (4)
  - ASTHENIA [None]
  - FAECES DISCOLOURED [None]
  - HYPOACUSIS [None]
  - SOMNOLENCE [None]
